FAERS Safety Report 5760382-5 (Version None)
Quarter: 2008Q2

REPORT INFORMATION
  Report Type: 
  Country: None (occurrence: None)
  Receive Date: 20080605
  Receipt Date: 20080526
  Transmission Date: 20081010
  Serious: Yes (Other)
  Sender: FDA-Public Use
  Company Number: RU-PFIZER INC-2008044869

PATIENT
  Age: 56 Year
  Sex: Male

DRUGS (2)
  1. QUINAPRIL HCL [Suspect]
     Indication: HYPERTENSION
     Dosage: DAILY DOSE:10MG
     Route: 048
     Dates: start: 20060101, end: 20060101
  2. QUINAPRIL HCL [Suspect]
     Indication: MYOCARDIAL ISCHAEMIA

REACTIONS (1)
  - PSORIASIS [None]
